FAERS Safety Report 24702031 (Version 1)
Quarter: 2024Q4

REPORT INFORMATION
  Report Type: Spontaneous
  Country: FR (occurrence: FR)
  Receive Date: 20241205
  Receipt Date: 20241205
  Transmission Date: 20250115
  Serious: Yes (Other)
  Sender: FRESENIUS KABI
  Company Number: None

PATIENT
  Age: 1 Month
  Sex: Male
  Weight: 3.4 kg

DRUGS (7)
  1. CARBOPLATIN [Suspect]
     Active Substance: CARBOPLATIN
     Indication: Spinal cord neoplasm
     Route: 042
     Dates: start: 20241024, end: 20241031
  2. BEVACIZUMAB [Suspect]
     Active Substance: BEVACIZUMAB
     Indication: Spinal cord neoplasm
     Route: 042
     Dates: start: 20241021, end: 20241104
  3. METHYLPREDNISOLONE SODIUM SUCCINATE [Suspect]
     Active Substance: METHYLPREDNISOLONE SODIUM SUCCINATE
     Indication: Product used for unknown indication
     Route: 042
     Dates: start: 20241005, end: 202410
  4. AMLODIPINE [AMLODIPINE] [Concomitant]
     Indication: Product used for unknown indication
     Route: 042
     Dates: start: 20241023
  5. RIVOTRIL [Concomitant]
     Active Substance: CLONAZEPAM
     Indication: Product used for unknown indication
     Route: 042
     Dates: start: 20241021
  6. LAROXYL [AMITRIPTYLINE HYDROCHLORIDE] [Concomitant]
     Indication: Product used for unknown indication
     Route: 042
     Dates: start: 20241021
  7. MORPHINE [MORPHINE] [Concomitant]
     Indication: Product used for unknown indication
     Route: 042
     Dates: start: 20241021

REACTIONS (1)
  - Hyponatraemia [Recovered/Resolved]

NARRATIVE: CASE EVENT DATE: 20241106
